FAERS Safety Report 7451935-7 (Version None)
Quarter: 2011Q2

REPORT INFORMATION
  Report Type: 
  Country: None (occurrence: None)
  Receive Date: 20110425
  Receipt Date: 20110411
  Transmission Date: 20111010
  Serious: No
  Sender: FDA-Public Use
  Company Number: 030996

PATIENT
  Sex: Female

DRUGS (1)
  1. LACOSAMIDE [Suspect]

REACTIONS (2)
  - MALAISE [None]
  - LOSS OF CONSCIOUSNESS [None]
